FAERS Safety Report 5139474-X (Version None)
Quarter: 2006Q4

REPORT INFORMATION
  Report Type: 
  Country: None (occurrence: None)
  Receive Date: 20061024
  Receipt Date: 20061011
  Transmission Date: 20070319
  Serious: Yes (Hospitalization, Other)
  Sender: FDA-Public Use
  Company Number: 2006117765

PATIENT
  Age: 38 Year
  Sex: Male

DRUGS (5)
  1. GEODON [Suspect]
     Dosage: 240 MG
  2. RISPERDAL [Suspect]
     Dosage: 2 MG (2 MG, 1 IN 1 D)
  3. LIBRIUM [Concomitant]
  4. LAMICTAL [Concomitant]
  5. RITALIN [Concomitant]

REACTIONS (3)
  - CONDITION AGGRAVATED [None]
  - CONVULSION [None]
  - MENTAL DISORDER [None]
